FAERS Safety Report 15726293 (Version 2)
Quarter: 2019Q1

REPORT INFORMATION
  Report Type: Spontaneous
  Country: US (occurrence: US)
  Receive Date: 20181216
  Receipt Date: 20190120
  Transmission Date: 20190417
  Serious: Yes (Hospitalization)
  Sender: FDA-Public Use
  Company Number: US-JNJFOC-20181205438

PATIENT
  Age: 42 Year
  Sex: Female
  Weight: 81.65 kg

DRUGS (1)
  1. XARELTO [Suspect]
     Active Substance: RIVAROXABAN
     Indication: PULMONARY EMBOLISM
     Route: 048
     Dates: start: 20170712, end: 20170726

REACTIONS (1)
  - Dysfunctional uterine bleeding [Recovering/Resolving]

NARRATIVE: CASE EVENT DATE: 201707
